FAERS Safety Report 9238860 (Version 1)
Quarter: 2013Q2

REPORT INFORMATION
  Report Type: Spontaneous
  Country: US (occurrence: None)
  Receive Date: 20130417
  Receipt Date: 20130417
  Transmission Date: 20140414
  Serious: No
  Sender: FDA-Public Use
  Company Number: None

PATIENT
  Age: 41 Year
  Sex: Female
  Weight: 54.4 kg

DRUGS (1)
  1. INTERFERON 2B [Suspect]

REACTIONS (4)
  - Fatigue [None]
  - Influenza like illness [None]
  - Pain in extremity [None]
  - Pain [None]
